FAERS Safety Report 20377764 (Version 1)
Quarter: 2022Q1

REPORT INFORMATION
  Report Type: Spontaneous
  Country: CN (occurrence: CN)
  Receive Date: 20220126
  Receipt Date: 20220126
  Transmission Date: 20220424
  Serious: Yes (Other)
  Sender: FDA-Public Use
  Company Number: CN-BoehringerIngelheim-2022-BI-108798

PATIENT
  Age: 54 Year
  Sex: Female
  Weight: 55 kg

DRUGS (5)
  1. PRADAXA [Suspect]
     Active Substance: DABIGATRAN ETEXILATE MESYLATE
     Indication: Atrial fibrillation
     Route: 048
     Dates: start: 20211212, end: 20211218
  2. ASPIRIN [Suspect]
     Active Substance: ASPIRIN
     Indication: Arteriosclerosis coronary artery
     Route: 048
     Dates: start: 20211201, end: 20211218
  3. ASPIRIN [Suspect]
     Active Substance: ASPIRIN
     Route: 048
     Dates: start: 20211220, end: 20211224
  4. CLOPIDOGREL BISULFATE [Suspect]
     Active Substance: CLOPIDOGREL BISULFATE
     Indication: Arteriosclerosis coronary artery
     Route: 048
     Dates: start: 20211201, end: 20211218
  5. CLOPIDOGREL BISULFATE [Suspect]
     Active Substance: CLOPIDOGREL BISULFATE
     Route: 048
     Dates: start: 20211219, end: 20211224

REACTIONS (5)
  - Diarrhoea haemorrhagic [Unknown]
  - Haematochezia [Unknown]
  - Upper gastrointestinal haemorrhage [Unknown]
  - Constipation [Unknown]
  - Dyschezia [Unknown]

NARRATIVE: CASE EVENT DATE: 20211224
